FAERS Safety Report 5781579-4 (Version None)
Quarter: 2008Q2

REPORT INFORMATION
  Report Type: 
  Country: None (occurrence: None)
  Receive Date: 20080623
  Receipt Date: 20070611
  Transmission Date: 20081010
  Serious: No
  Sender: FDA-Public Use
  Company Number: US-ASTRAZENECA-2007UW13931

PATIENT
  Age: 3 Year
  Sex: Male
  Weight: 14.5 kg

DRUGS (1)
  1. RHINOCORT [Suspect]
     Indication: NASAL DISORDER
     Dosage: 1 SPRAY EACH NOSTRIL QD
     Route: 045

REACTIONS (4)
  - EYE PAIN [None]
  - HEADACHE [None]
  - ILL-DEFINED DISORDER [None]
  - NAUSEA [None]
